FAERS Safety Report 7494545-8 (Version None)
Quarter: 2011Q2

REPORT INFORMATION
  Report Type: 
  Country: None (occurrence: None)
  Receive Date: 20110520
  Receipt Date: 20110511
  Transmission Date: 20111010
  Serious: Yes (Other)
  Sender: FDA-Public Use
  Company Number: PHHY2011US40391

PATIENT
  Sex: Female

DRUGS (5)
  1. VIVELLE [Suspect]
     Dosage: 0.037 MG, UNK
     Route: 062
  2. VIVELLE-DOT [Suspect]
     Dosage: 0.05 MG, QW2
     Route: 062
  3. VIVELLE [Suspect]
     Dosage: 0.05 MG, UNK
     Route: 062
     Dates: start: 19970101
  4. VIVELLE-DOT [Suspect]
     Dosage: 0.037 MG, UNK
     Route: 062
  5. VIVELLE-DOT [Suspect]
     Dosage: 0.025 MG, UNK
     Route: 062

REACTIONS (1)
  - DEAFNESS [None]
